FAERS Safety Report 18596037 (Version 1)
Quarter: 2020Q4

REPORT INFORMATION
  Report Type: Spontaneous
  Country: US (occurrence: US)
  Receive Date: 20201209
  Receipt Date: 20201209
  Transmission Date: 20210114
  Serious: Yes (Other)
  Sender: FDA-Public Use
  Company Number: None

PATIENT
  Age: 25 Year
  Sex: Male
  Weight: 76.5 kg

DRUGS (2)
  1. PENICILLIN [Suspect]
     Active Substance: PENICILLIN
  2. CEFTRIAXONE. [Suspect]
     Active Substance: CEFTRIAXONE
     Indication: GONORRHOEA
     Dosage: ?          QUANTITY:1 INJECTION(S);OTHER FREQUENCY:ONCE;?
     Route: 058
     Dates: start: 20201204, end: 20201204

REACTIONS (11)
  - Abdominal pain upper [None]
  - Back pain [None]
  - Asthenia [None]
  - Nausea [None]
  - Dyspnoea [None]
  - Fatigue [None]
  - Anaphylactic reaction [None]
  - Dizziness [None]
  - Crying [None]
  - Headache [None]
  - Mood altered [None]

NARRATIVE: CASE EVENT DATE: 20201204
